FAERS Safety Report 7506547-3 (Version None)
Quarter: 2011Q2

REPORT INFORMATION
  Report Type: 
  Country: None (occurrence: None)
  Receive Date: 20110526
  Receipt Date: 20110523
  Transmission Date: 20111010
  Serious: Yes (Disabling)
  Sender: FDA-Public Use
  Company Number: DE-MERCK-1105DEU00099

PATIENT
  Age: 102 Year
  Sex: Female
  Weight: 45 kg

DRUGS (1)
  1. FOSAMAX [Suspect]
     Indication: OSTEOPOROSIS
     Route: 048
     Dates: start: 20070301, end: 20100301

REACTIONS (2)
  - FISTULA [None]
  - OSTEONECROSIS [None]
